FAERS Safety Report 18935735 (Version 2)
Quarter: 2021Q1

REPORT INFORMATION
  Report Type: Other
  Country: AT (occurrence: AT)
  Receive Date: 20210224
  Receipt Date: 20210224
  Transmission Date: 20210420
  Serious: Yes (Hospitalization)
  Sender: FDA-Public Use
  Company Number: AT-CELLTRION INC.-2021AT002176

PATIENT

DRUGS (13)
  1. ARANESP [Concomitant]
     Active Substance: DARBEPOETIN ALFA
     Dosage: UNK
     Dates: start: 20170711
  2. DOLOPHINE [Concomitant]
     Active Substance: METHADONE HYDROCHLORIDE
  3. EPIRUBICIN [Suspect]
     Active Substance: EPIRUBICIN
     Indication: BREAST CANCER
     Dosage: 100 MG/M2 EVERY 3 WEEKS (DATE OF MOST RECENT DOSE OF EPIRUBICIN PRIOR TO EVENT ONSET: 10/JUL/2018)
     Route: 042
     Dates: start: 20180529
  4. DOCETAXEL. [Suspect]
     Active Substance: DOCETAXEL
     Indication: BREAST CANCER
     Dosage: 109 MG EVERY 3 WEEKS  (DATE OF MOST RECENT DOSE OF DOCETAXEL PRIOR TO THE EVENT ONSET: 23/OCT/2017)
     Route: 042
     Dates: start: 20170912
  5. EMEND [Concomitant]
     Active Substance: APREPITANT
     Dosage: UNK
     Dates: start: 20170711
  6. PERTUZUMAB. [Suspect]
     Active Substance: PERTUZUMAB
     Indication: BREAST CANCER
     Dosage: 420 MG EVERY 3 WEEKS (SUBSEQUENT DOSE ON 23/OCT/2017; DATE OF MOST RECENT DOSE OF PERTUZUMAB PRIOR T
     Route: 042
     Dates: start: 20170912
  7. NEULASTA [Concomitant]
     Active Substance: PEGFILGRASTIM
     Dosage: UNK
     Dates: start: 20170711
  8. TRASTUZUMAB (UNKNOWN) [Suspect]
     Active Substance: TRASTUZUMAB
     Indication: BREAST CANCER
     Dosage: 6 MG/KG EVERY 3 WEEKS (SUBSEQUENT DOSE ON 21/JAN/2020; DATE OF MOST RECENT DOSE OF TRASTUZUMAB PRIOR
     Route: 042
     Dates: start: 20170912
  9. 5?FLUOROURACIL [FLUOROURACIL] [Suspect]
     Active Substance: FLUOROURACIL
     Indication: BREAST CANCER
     Dosage: 500 MG/M2 EVERY 3 WEEKS (SUBSEQUENT DOSE ON 10/JUL/2018; DATE OF MOST RECENT DOSE OF 5?FLUOROURACIL
     Route: 042
     Dates: start: 20180529
  10. CYCLOPHOSPHAMIDE. [Suspect]
     Active Substance: CYCLOPHOSPHAMIDE
     Indication: BREAST CANCER
     Dosage: 500 MG/M2 EVERY 3 WEEKS (DATE OF MOST RECENT DOSE OF CYCLOPHOSPHAMIDE PRIOR TO EVENT ONSET: 10/JUL/2
     Route: 042
     Dates: start: 20180529
  11. FORTECORTIN [DEXAMETHASONE] [Concomitant]
     Active Substance: DEXAMETHASONE
     Dosage: UNK
     Dates: start: 20170711
  12. CARBOPLATIN. [Suspect]
     Active Substance: CARBOPLATIN
     Indication: BREAST CANCER
     Dosage: 528 MG EVERY 3 WEEKS  (DATE OF MOST RECENT DOSE OF CARBOPLATIN PRIOR TO THE EVENT ONSET: 23/OCT/2017
     Route: 042
     Dates: start: 20170912
  13. ZOFRAN [Concomitant]
     Active Substance: ONDANSETRON HYDROCHLORIDE
     Dosage: UNK
     Dates: start: 20170611

REACTIONS (1)
  - Febrile neutropenia [Recovered/Resolved]

NARRATIVE: CASE EVENT DATE: 20200218
